FAERS Safety Report 8395091-X (Version None)
Quarter: 2012Q2

REPORT INFORMATION
  Report Type: 
  Country: None (occurrence: None)
  Receive Date: 20120530
  Receipt Date: 20120522
  Transmission Date: 20120825
  Serious: No
  Sender: FDA-Public Use
  Company Number: US-ASTRAZENECA-2012SE33069

PATIENT
  Age: 57 Year
  Sex: Female

DRUGS (1)
  1. SEROQUEL [Suspect]
     Indication: DEPRESSION
     Dosage: 300 MG IN THE EVENING
     Route: 048

REACTIONS (5)
  - DEPRESSION [None]
  - MALAISE [None]
  - INSOMNIA [None]
  - FEAR [None]
  - INTENTIONAL DRUG MISUSE [None]
